FAERS Safety Report 9393436 (Version 1)
Quarter: 2013Q3

REPORT INFORMATION
  Report Type: Report from Study
  Country: US (occurrence: US)
  Receive Date: 20130710
  Receipt Date: 20130710
  Transmission Date: 20140515
  Serious: Yes (Other)
  Sender: FDA-Public Use
  Company Number: US-CELGENEUS-163-21880-13070399

PATIENT
  Sex: 0

DRUGS (2)
  1. REVLIMID [Suspect]
     Indication: B-CELL LYMPHOMA
     Dosage: 20 MILLIGRAM
     Route: 048
  2. RITUXIMAB [Suspect]
     Indication: B-CELL LYMPHOMA
     Route: 048

REACTIONS (18)
  - Respiratory disorder [Unknown]
  - Infusion related reaction [Unknown]
  - Neutropenia [Unknown]
  - Lymphopenia [Unknown]
  - Rash [Unknown]
  - Fatigue [Unknown]
  - Leukopenia [Unknown]
  - Nausea [Unknown]
  - Constipation [Unknown]
  - Alanine aminotransferase increased [Unknown]
  - Hyperglycaemia [Unknown]
  - Hypophosphataemia [Unknown]
  - Pain [Unknown]
  - Stomatitis [Unknown]
  - Myalgia [Unknown]
  - Febrile neutropenia [Unknown]
  - B-cell lymphoma [Unknown]
  - No therapeutic response [Unknown]
